FAERS Safety Report 7788368-X (Version None)
Quarter: 2011Q3

REPORT INFORMATION
  Report Type: 
  Country: None (occurrence: None)
  Receive Date: 20110930
  Receipt Date: 20110923
  Transmission Date: 20111222
  Serious: Yes (Hospitalization)
  Sender: FDA-Public Use
  Company Number: CA-B.I. PHARMACEUTICALS,INC./RIDGEFIELD-2011-CN-01430CN

PATIENT
  Age: 82 Year
  Sex: Female
  Weight: 66.5 kg

DRUGS (9)
  1. PANTOPRAZOLE SODIUM [Concomitant]
     Dosage: 40 MG
     Route: 048
  2. PERINDOPRIL ERBUMINE [Concomitant]
     Dosage: 2 MG
     Route: 048
     Dates: start: 20110913
  3. PRADAXA [Suspect]
     Indication: ATRIAL FIBRILLATION
     Dosage: 220 MG
     Dates: start: 20110606, end: 20110919
  4. LUMIGAN [Concomitant]
     Dosage: 1 DROP OS HS
  5. ASPIRIN [Concomitant]
     Dosage: 80 MG
     Route: 048
  6. SIMVASTATIN [Concomitant]
     Dosage: 20 MG
  7. DYAZIDE [Concomitant]
     Dosage: 1 TAB PO QD
     Route: 048
  8. BISOPROLOL [Concomitant]
     Dosage: 5 MG
     Route: 048
  9. AZARGA [Concomitant]
     Dosage: 1 DROP OS BID

REACTIONS (6)
  - DYSPNOEA [None]
  - FAECES DISCOLOURED [None]
  - DIARRHOEA [None]
  - ANAEMIA [None]
  - CHEST PAIN [None]
  - ABDOMINAL PAIN [None]
